FAERS Safety Report 8738996 (Version 2)
Quarter: 2013Q4

REPORT INFORMATION
  Report Type: Spontaneous
  Country: US (occurrence: US)
  Receive Date: 20120823
  Receipt Date: 20131101
  Transmission Date: 20140711
  Serious: No
  Sender: FDA-Public Use
  Company Number: US-009507513-1208USA000243

PATIENT
  Age: 84 Year
  Sex: Male

DRUGS (5)
  1. REMERON [Suspect]
     Route: 048
  2. EFFEXOR [Concomitant]
  3. LAMICTAL [Concomitant]
  4. KLONOPIN [Concomitant]
  5. TEMAZEPAM [Concomitant]

REACTIONS (1)
  - Confusional state [Not Recovered/Not Resolved]
